FAERS Safety Report 4728006-3 (Version None)
Quarter: 2005Q3

REPORT INFORMATION
  Report Type: 
  Country: None (occurrence: None)
  Receive Date: 20050725
  Receipt Date: 20050404
  Transmission Date: 20060218
  Serious: No
  Sender: FDA-Public Use
  Company Number: USA050494816

PATIENT
  Age: 20 Year
  Sex: Male

DRUGS (1)
  1. STRATTERA [Suspect]
     Dosage: 40 MG/1 DAY
     Dates: start: 20050101

REACTIONS (4)
  - AGITATION [None]
  - MOOD SWINGS [None]
  - MYDRIASIS [None]
  - NERVOUSNESS [None]
